FAERS Safety Report 11530219 (Version 1)
Quarter: 2015Q3

REPORT INFORMATION
  Report Type: Spontaneous
  Country: US (occurrence: US)
  Receive Date: 20150921
  Receipt Date: 20150921
  Transmission Date: 20151125
  Serious: Yes (Hospitalization)
  Sender: FDA-Public Use
  Company Number: US-SMITH AND NEPHEW, INC-2015SMT00314

PATIENT
  Age: 89 Year
  Sex: Female

DRUGS (10)
  1. COUMADIN [Concomitant]
     Active Substance: WARFARIN SODIUM
     Dosage: 2 MG, 1X/DAY
  2. REGRANEX [Suspect]
     Active Substance: BECAPLERMIN
     Indication: DECUBITUS ULCER
     Dosage: UNK, 1X/DAY
     Route: 061
  3. AMARYL [Concomitant]
     Active Substance: GLIMEPIRIDE
     Dosage: 2 MG, 1X/DAY
  4. POTASSIUM SUPPLEMENT [Concomitant]
     Active Substance: POTASSIUM
     Dosage: 10 UNK, 1X/DAY
     Dates: end: 201507
  5. LASIX [Concomitant]
     Active Substance: FUROSEMIDE
     Dosage: 80 MG, 1X/DAY
     Dates: start: 201507, end: 2015
  6. POTASSIUM SUPPLEMENT [Concomitant]
     Active Substance: POTASSIUM
     Dosage: 60 MG, 1X/DAY
     Dates: start: 201507, end: 2015
  7. POTASSIUM SUPPLEMENT [Concomitant]
     Active Substance: POTASSIUM
     Dosage: 20 UNK, 1X/DAY
     Dates: start: 2015
  8. GABAPENTIN. [Concomitant]
     Active Substance: GABAPENTIN
     Dosage: 300 MG, 2X/DAY
  9. LASIX [Concomitant]
     Active Substance: FUROSEMIDE
     Dosage: 20 MG, 1X/DAY
     Dates: end: 201507
  10. LASIX [Concomitant]
     Active Substance: FUROSEMIDE
     Dosage: 40 MG, 1X/DAY
     Dates: start: 2015

REACTIONS (8)
  - Wound complication [Unknown]
  - Blood phosphorus increased [Unknown]
  - Blood glucose increased [Unknown]
  - Blood urea increased [Unknown]
  - Cardiac failure congestive [Unknown]
  - Dehydration [Unknown]
  - Blood creatinine increased [Unknown]
  - Blood alkaline phosphatase decreased [Unknown]

NARRATIVE: CASE EVENT DATE: 20150714
